FAERS Safety Report 6876713-9 (Version None)
Quarter: 2010Q3

REPORT INFORMATION
  Report Type: 
  Country: None (occurrence: None)
  Receive Date: 20100727
  Receipt Date: 20100726
  Transmission Date: 20110219
  Serious: Yes (Other)
  Sender: FDA-Public Use
  Company Number: JP-ROXANE LABORATORIES, INC.-2010-RO-00907RO

PATIENT
  Age: 74 Year
  Sex: Female

DRUGS (9)
  1. RISPERIDONE [Suspect]
     Indication: HALLUCINATION, VISUAL
     Dosage: 1 MG
  2. RISPERIDONE [Suspect]
     Indication: COGNITIVE DISORDER
     Dosage: 0.5 MG
  3. RISPERIDONE [Suspect]
     Indication: DELUSION
  4. HALOPERIDOL [Suspect]
     Indication: HALLUCINATION, VISUAL
     Dosage: 1.5 MG
  5. HALOPERIDOL [Suspect]
     Indication: COGNITIVE DISORDER
  6. HALOPERIDOL [Suspect]
     Indication: DELUSION
  7. DONEPEZIL HCL [Suspect]
     Indication: HALLUCINATION, VISUAL
  8. DONEPEZIL HCL [Suspect]
     Indication: DEMENTIA WITH LEWY BODIES
     Dosage: 3 MG
  9. DONEPEZIL HCL [Suspect]
     Dosage: 1.5 MG

REACTIONS (2)
  - DEMENTIA WITH LEWY BODIES [None]
  - PARKINSONISM [None]
